FAERS Safety Report 16172185 (Version 1)
Quarter: 2019Q2

REPORT INFORMATION
  Report Type: Spontaneous
  Country: UA (occurrence: UA)
  Receive Date: 20190409
  Receipt Date: 20190409
  Transmission Date: 20190711
  Serious: Yes (Other)
  Sender: FDA-Public Use
  Company Number: UA-TEVA-2019-UA-1036520

PATIENT
  Age: 72 Year
  Sex: Male

DRUGS (1)
  1. SUMAMED 500 MG [Suspect]
     Active Substance: AZITHROMYCIN

REACTIONS (2)
  - Oedema [Recovered/Resolved]
  - Asphyxia [Recovered/Resolved]
